FAERS Safety Report 8224652-3 (Version None)
Quarter: 2012Q1

REPORT INFORMATION
  Report Type: 
  Country: None (occurrence: None)
  Receive Date: 20120321
  Receipt Date: 20120316
  Transmission Date: 20120608
  Serious: Yes (Other)
  Sender: FDA-Public Use
  Company Number: US-FRI-1000029122

PATIENT
  Age: 78 Year
  Sex: Male

DRUGS (4)
  1. LEXAPRO [Concomitant]
     Indication: ANXIETY
  2. BYSTOLIC [Suspect]
     Indication: HYPERTENSION
     Dosage: 5 MG
     Route: 048
     Dates: start: 20100701
  3. DIOVAN [Concomitant]
     Indication: HYPERTENSION
  4. ULORIC [Concomitant]
     Indication: GOUT

REACTIONS (2)
  - BLOOD TRIGLYCERIDES INCREASED [None]
  - GOUT [None]
